FAERS Safety Report 6252641-7 (Version None)
Quarter: 2009Q2

REPORT INFORMATION
  Report Type: 
  Country: None (occurrence: None)
  Receive Date: 20090629
  Receipt Date: 20090618
  Transmission Date: 20091009
  Serious: Yes (Other)
  Sender: FDA-Public Use
  Company Number: CHPA2009US13746

PATIENT
  Age: 81 Year
  Sex: Female
  Weight: 71.2 kg

DRUGS (7)
  1. EXCEDRIN SINUS HEADACHE (NCH) (PARACETAMOL, PHENYLEPHRINE) CAPLET [Suspect]
     Indication: HEADACHE
     Dosage: 2 DF, BID, ORAL
     Route: 048
  2. BONIVA (BANDRONATE SODIUM) [Concomitant]
  3. AGGRENOX [Concomitant]
  4. ALLEGRA [Concomitant]
  5. NEXIUM [Concomitant]
  6. ARICEPT [Concomitant]
  7. SINGULAIR [Concomitant]

REACTIONS (3)
  - DEPRESSION [None]
  - INTENTIONAL DRUG MISUSE [None]
  - OEDEMA PERIPHERAL [None]
